FAERS Safety Report 14423468 (Version 2)
Quarter: 2018Q3

REPORT INFORMATION
  Report Type: Spontaneous
  Country: DE (occurrence: DE)
  Receive Date: 20180123
  Receipt Date: 20180802
  Transmission Date: 20181010
  Serious: Yes (Hospitalization, Other)
  Sender: FDA-Public Use
  Company Number: DE-TEVA-2018-DE-848064

PATIENT
  Age: 66 Year
  Sex: Male
  Weight: 110 kg

DRUGS (3)
  1. XARELTO [Interacting]
     Active Substance: RIVAROXABAN
     Indication: ATRIAL FIBRILLATION
     Dosage: 20 MG
     Route: 048
     Dates: start: 20120222
  2. METOPROLOL. [Concomitant]
     Active Substance: METOPROLOL
     Dosage: 2.5 MILLIGRAM DAILY;
     Route: 065
  3. CLOPIDOGREL [Suspect]
     Active Substance: CLOPIDOGREL BISULFATE
     Dosage: 75 MG, UNK
     Route: 065
     Dates: start: 20120222

REACTIONS (8)
  - Cerebral infarction [Recovering/Resolving]
  - Fine motor skill dysfunction [Unknown]
  - Cerebral infarction [Recovering/Resolving]
  - Hypoaesthesia [Unknown]
  - Aphasia [Recovering/Resolving]
  - Motor dysfunction [Recovering/Resolving]
  - Cerebrovascular accident [Unknown]
  - Drug interaction [Unknown]

NARRATIVE: CASE EVENT DATE: 201703
